FAERS Safety Report 13042429 (Version 1)
Quarter: 2016Q4

REPORT INFORMATION
  Report Type: Spontaneous
  Country: US (occurrence: US)
  Receive Date: 20161219
  Receipt Date: 20161219
  Transmission Date: 20170207
  Serious: Yes (Death, Other)
  Sender: FDA-Public Use
  Company Number: US-BAYER-2016-235009

PATIENT
  Age: 70 Year
  Sex: Female

DRUGS (1)
  1. ALEVE [Suspect]
     Active Substance: NAPROXEN SODIUM
     Indication: PAIN
     Dosage: 2 OR 3
     Route: 048

REACTIONS (6)
  - Gastric ulcer [Unknown]
  - Intestinal ulcer [Unknown]
  - Coma [Fatal]
  - Drug dependence [Unknown]
  - Product use issue [Unknown]
  - Product use issue [None]
